FAERS Safety Report 6316072-3 (Version None)
Quarter: 2009Q3

REPORT INFORMATION
  Report Type: 
  Country: None (occurrence: None)
  Receive Date: 20090820
  Receipt Date: 20090810
  Transmission Date: 20100115
  Serious: Yes (Other)
  Sender: FDA-Public Use
  Company Number: PHHY2009CA33999

PATIENT
  Sex: Female

DRUGS (3)
  1. FEMARA [Suspect]
     Dosage: 2.5 MG/DAY
  2. CIPRALEX [Concomitant]
  3. DRUG THERAPY NOS [Concomitant]

REACTIONS (1)
  - HALLUCINATION, AUDITORY [None]
